FAERS Safety Report 14926498 (Version 2)
Quarter: 2018Q4

REPORT INFORMATION
  Report Type: Report from Study
  Country: US (occurrence: US)
  Receive Date: 20180523
  Receipt Date: 20181020
  Transmission Date: 20190204
  Serious: Yes (Other)
  Sender: FDA-Public Use
  Company Number: US-AMGEN-USASL2018067452

PATIENT
  Age: 64 Year
  Sex: Male

DRUGS (2)
  1. ENBREL [Suspect]
     Active Substance: ETANERCEPT
     Indication: ANKYLOSING SPONDYLITIS
     Dosage: 50 MG, QWK
     Route: 065
     Dates: start: 201801
  2. ENBREL [Suspect]
     Active Substance: ETANERCEPT
     Dosage: 25 MG, UNK
     Route: 065
     Dates: start: 2018

REACTIONS (11)
  - Mood swings [Unknown]
  - Ankylosing spondylitis [Unknown]
  - Headache [Unknown]
  - Eye pain [Unknown]
  - Hypersensitivity [Unknown]
  - Eye pruritus [Unknown]
  - Lethargy [Unknown]
  - Depression [Unknown]
  - Ocular hyperaemia [Unknown]
  - Bone pain [Unknown]
  - Anxiety [Unknown]

NARRATIVE: CASE EVENT DATE: 2018
